FAERS Safety Report 12414928 (Version 2)
Quarter: 2019Q2

REPORT INFORMATION
  Report Type: Spontaneous
  Country: CA (occurrence: CA)
  Receive Date: 20160530
  Receipt Date: 20190524
  Transmission Date: 20190711
  Serious: Yes (Other)
  Sender: FDA-Public Use
  Company Number: CA-ROCHE-1764699

PATIENT
  Sex: Female

DRUGS (1)
  1. XOLAIR [Suspect]
     Active Substance: OMALIZUMAB
     Indication: MASTOCYTOSIS
     Route: 058
     Dates: start: 20110101

REACTIONS (6)
  - Palpitations [Unknown]
  - Flushing [Unknown]
  - Anxiety [Unknown]
  - Off label use [Unknown]
  - Panic attack [Unknown]
  - Anaphylactic reaction [Recovering/Resolving]
